FAERS Safety Report 5731297-3 (Version None)
Quarter: 2008Q2

REPORT INFORMATION
  Report Type: 
  Country: None (occurrence: None)
  Receive Date: 20080505
  Receipt Date: 20080422
  Transmission Date: 20081010
  Serious: Yes (Hospitalization)
  Sender: FDA-Public Use
  Company Number: 100#03#2008-02285

PATIENT
  Age: 82 Year
  Sex: Female

DRUGS (11)
  1. FLUCONAZOLE [Suspect]
     Indication: DRUG USE FOR UNKNOWN INDICATION
  2. ATORVASTATIN CALCIUM [Suspect]
     Indication: DRUG USE FOR UNKNOWN INDICATION
  3. ALENDRONATE SODIUM (ALENDRONIC ACID) [Concomitant]
  4. ACETYLSALICYLIC ACID SRT [Concomitant]
  5. BISOPROLOL FUMARATE [Concomitant]
  6. CALCICHEW D3 (CALCIUM CARBONATE, CHOLECALCIFEROL) [Concomitant]
  7. FERRIC SULPHATE (IRON) [Concomitant]
  8. FUROSEMIDE [Concomitant]
  9. ISOSORBIDE MONONITRATE [Concomitant]
  10. LANSOPRAZOLE [Concomitant]
  11. NICORANDIL (NICORANDIL) [Concomitant]

REACTIONS (1)
  - PANCREATITIS [None]
